FAERS Safety Report 6931748-2 (Version None)
Quarter: 2010Q3

REPORT INFORMATION
  Report Type: 
  Country: None (occurrence: None)
  Receive Date: 20100819
  Receipt Date: 20100726
  Transmission Date: 20110219
  Serious: No
  Sender: FDA-Public Use
  Company Number: US-ROXANE LABORATORIES, INC.-2010-RO-00912RO

PATIENT
  Age: 68 Year
  Sex: Female

DRUGS (2)
  1. AZATHIOPRINE [Suspect]
     Indication: RHEUMATOID ARTHRITIS
     Dosage: 50 MG
     Route: 048
     Dates: start: 20100701, end: 20100701
  2. AZATHIOPRINE [Suspect]
     Dosage: 100 MG
     Route: 048
     Dates: start: 20100701

REACTIONS (3)
  - CHEST PAIN [None]
  - DIZZINESS [None]
  - FATIGUE [None]
